FAERS Safety Report 7916045-0 (Version None)
Quarter: 2011Q4

REPORT INFORMATION
  Report Type: 
  Country: None (occurrence: None)
  Receive Date: 20111115
  Receipt Date: 20111103
  Transmission Date: 20120403
  Serious: Yes (Hospitalization, Other)
  Sender: FDA-Public Use
  Company Number: CH-ELI_LILLY_AND_COMPANY-CH201111001766

PATIENT
  Age: 71 Year
  Sex: Female

DRUGS (5)
  1. VITAMIN D [Concomitant]
     Indication: OSTEOPOROSIS
     Dosage: UNK
     Dates: start: 20100501
  2. FORTEO [Suspect]
     Indication: OSTEOPOROSIS
     Dosage: UNK
     Route: 058
  3. CALCIUM [Concomitant]
     Indication: OSTEOPOROSIS
     Dosage: UNK
     Dates: start: 20100501
  4. MAGNESIUM [Concomitant]
     Indication: OSTEOPOROSIS
     Dosage: UNK
     Dates: start: 20100501
  5. VITAMIN B6 [Concomitant]
     Indication: OSTEOPOROSIS
     Dosage: UNK
     Dates: start: 20100501

REACTIONS (3)
  - TRANSIENT ISCHAEMIC ATTACK [None]
  - SPEECH DISORDER [None]
  - PAIN IN EXTREMITY [None]
